FAERS Safety Report 21601773 (Version 1)
Quarter: 2022Q4

REPORT INFORMATION
  Report Type: Report from Study
  Country: CA (occurrence: CA)
  Receive Date: 20221116
  Receipt Date: 20221116
  Transmission Date: 20230113
  Serious: Yes (Other)
  Sender: FDA-Public Use
  Company Number: CA-ASTELLAS-2022US040396

PATIENT
  Age: 68 Year
  Sex: Male

DRUGS (1)
  1. ENZALUTAMIDE [Suspect]
     Active Substance: ENZALUTAMIDE
     Indication: Hormone-refractory prostate cancer
     Route: 048
     Dates: start: 20210713

REACTIONS (5)
  - Loss of consciousness [Unknown]
  - Dizziness [Unknown]
  - Upper limb fracture [Unknown]
  - Rib fracture [Unknown]
  - Limb injury [Unknown]

NARRATIVE: CASE EVENT DATE: 20221001
